FAERS Safety Report 7934794-5 (Version None)
Quarter: 2011Q4

REPORT INFORMATION
  Report Type: 
  Country: None (occurrence: None)
  Receive Date: 20111116
  Receipt Date: 20111109
  Transmission Date: 20120403
  Serious: Yes (Other)
  Sender: FDA-Public Use
  Company Number: 2011SP043605

PATIENT
  Age: 44 Year
  Sex: Female

DRUGS (5)
  1. MIRTAZAPINE [Suspect]
     Indication: SLEEP DISORDER
     Dosage: 7.5 MG;QD;PO
     Route: 048
     Dates: start: 20110412
  2. LOPERAMIDE HCL [Concomitant]
  3. ALPRAZOLAM [Concomitant]
  4. DORAL [Concomitant]
  5. ETIZOLAM [Concomitant]

REACTIONS (3)
  - TREMOR [None]
  - THIRST [None]
  - COLD SWEAT [None]
